FAERS Safety Report 6819576-X (Version None)
Quarter: 2010Q3

REPORT INFORMATION
  Report Type: 
  Country: None (occurrence: None)
  Receive Date: 20100701
  Receipt Date: 20090528
  Transmission Date: 20110219
  Serious: No
  Sender: FDA-Public Use
  Company Number: US-TEVA-196544USA

PATIENT
  Sex: Female
  Weight: 59.02 kg

DRUGS (6)
  1. AZILECT [Suspect]
     Indication: PARKINSON'S DISEASE
     Route: 048
     Dates: start: 20080501, end: 20080501
  2. VITAMIN D [Concomitant]
  3. IRON [Concomitant]
  4. MAGNESIUM [Concomitant]
  5. CALCIUM CARBONATE [Concomitant]
  6. M.V.I. [Concomitant]

REACTIONS (1)
  - RASH PRURITIC [None]
